FAERS Safety Report 25434270 (Version 1)
Quarter: 2025Q2

REPORT INFORMATION
  Report Type: Report from Study
  Country: US (occurrence: US)
  Receive Date: 20250613
  Receipt Date: 20250613
  Transmission Date: 20250717
  Serious: Yes (Hospitalization, Other)
  Sender: TEVA
  Company Number: US-TEVA-VS-3338774

PATIENT
  Age: 65 Year
  Sex: Female

DRUGS (1)
  1. AUSTEDO XR [Suspect]
     Active Substance: DEUTETRABENAZINE
     Indication: Product used for unknown indication
     Route: 065
     Dates: start: 202505, end: 2025

REACTIONS (10)
  - Cystitis [Unknown]
  - Aphasia [Unknown]
  - Incoherent [Unknown]
  - Brain fog [Unknown]
  - Drug effect less than expected [Unknown]
  - Therapeutic product effect incomplete [Unknown]
  - Kidney infection [Unknown]
  - Parkinson^s disease [Unknown]
  - Tremor [Unknown]
  - Product use issue [Unknown]

NARRATIVE: CASE EVENT DATE: 20250101
